FAERS Safety Report 4332092-2 (Version None)
Quarter: 2004Q2

REPORT INFORMATION
  Report Type: 
  Country: None (occurrence: None)
  Receive Date: 20040405
  Receipt Date: 20040326
  Transmission Date: 20050107
  Serious: Yes (Disabling)
  Sender: FDA-Public Use
  Company Number: ZA-ROCHE-362924

PATIENT
  Age: 42 Year
  Sex: Male

DRUGS (1)
  1. LARIAM [Suspect]
     Indication: DRUG USE FOR UNKNOWN INDICATION
     Route: 048
     Dates: start: 20040308, end: 20040322

REACTIONS (1)
  - PSORIASIS [None]
